FAERS Safety Report 25690952 (Version 1)
Quarter: 2025Q3

REPORT INFORMATION
  Report Type: Spontaneous
  Country: US (occurrence: US)
  Receive Date: 20250818
  Receipt Date: 20250818
  Transmission Date: 20251020
  Serious: No
  Sender: NOVARTIS
  Company Number: US-002147023-NVSC2025US125189

PATIENT
  Sex: Male

DRUGS (1)
  1. MEKINIST [Suspect]
     Active Substance: TRAMETINIB DIMETHYL SULFOXIDE
     Indication: Acute lymphocytic leukaemia
     Dosage: 2 MG, QD
     Route: 048
     Dates: start: 202507

REACTIONS (3)
  - Rash [Unknown]
  - Visual impairment [Unknown]
  - Abdominal discomfort [Unknown]
